FAERS Safety Report 8342684-1 (Version None)
Quarter: 2012Q2

REPORT INFORMATION
  Report Type: 
  Country: None (occurrence: None)
  Receive Date: 20120508
  Receipt Date: 20120501
  Transmission Date: 20120825
  Serious: Yes (Hospitalization)
  Sender: FDA-Public Use
  Company Number: US-AMGEN-USASP2012027931

PATIENT
  Sex: Female

DRUGS (9)
  1. LEVOTHYROXINE SODIUM [Concomitant]
     Dosage: 1 MUG, UNK
  2. ARANESP [Suspect]
     Indication: COOMBS NEGATIVE HAEMOLYTIC ANAEMIA
     Dosage: 60 MUG, ONE TIME DOSE
     Dates: start: 20120401
  3. FOLIC ACID [Concomitant]
     Dosage: 1 MG, UNK
  4. PREDNISONE [Concomitant]
     Dosage: 1 MG, UNK
  5. VITAMIN E                          /00110501/ [Concomitant]
     Dosage: 1 IU, UNK
  6. LOSARTAN POTASSIUM [Concomitant]
     Dosage: 2 MG, UNK
  7. ASPIRIN [Concomitant]
     Dosage: 1 MG, UNK
  8. IMURAN [Concomitant]
     Dosage: 1 MG, UNK
  9. VITAMIN B12                        /00056201/ [Concomitant]
     Dosage: 1 MUG, UNK

REACTIONS (10)
  - ASTHENIA [None]
  - FEBRILE NEUTROPENIA [None]
  - MYALGIA [None]
  - MALAISE [None]
  - NAUSEA [None]
  - SLUGGISHNESS [None]
  - HAEMOGLOBIN DECREASED [None]
  - PLATELET COUNT DECREASED [None]
  - HEADACHE [None]
  - FATIGUE [None]
